FAERS Safety Report 21532451 (Version 1)
Quarter: 2022Q4

REPORT INFORMATION
  Report Type: Report from Study
  Country: US (occurrence: US)
  Receive Date: 20221101
  Receipt Date: 20221101
  Transmission Date: 20230113
  Serious: Yes (Hospitalization)
  Sender: FDA-Public Use
  Company Number: US-BRISTOL-MYERS SQUIBB COMPANY-2022-124917

PATIENT
  Age: 77 Year
  Sex: Male
  Weight: 78.92 kg

DRUGS (4)
  1. POMALYST [Suspect]
     Active Substance: POMALIDOMIDE
     Indication: Plasma cell myeloma
     Dosage: 1 CAPSULE 3 TIMES A WEEK ON MONDAY, WEDNESDAY, AND FRIDAY FOR 3 OUT OF 4 WEEKS. ON EMPTY STOMACH, 2
     Route: 048
     Dates: start: 20201005
  2. ASPIRIN [Concomitant]
     Active Substance: ASPIRIN
     Indication: Product used for unknown indication
     Route: 065
  3. VITAMINS [Concomitant]
     Active Substance: VITAMINS
     Indication: Product used for unknown indication
     Route: 065
  4. DEXAMETHASONE [Concomitant]
     Active Substance: DEXAMETHASONE
     Indication: Product used for unknown indication

REACTIONS (3)
  - Swelling [Unknown]
  - Off label use [Unknown]
  - Dyspnoea [Unknown]
